FAERS Safety Report 5477365-5 (Version None)
Quarter: 2007Q4

REPORT INFORMATION
  Report Type: 
  Country: None (occurrence: None)
  Receive Date: 20071001
  Receipt Date: 20070921
  Transmission Date: 20080405
  Serious: Yes (Hospitalization)
  Sender: FDA-Public Use
  Company Number: 2007SP018349

PATIENT
  Age: 42 Year
  Sex: Male
  Weight: 82 kg

DRUGS (3)
  1. VIRAFERONPEG [Suspect]
     Indication: HEPATITIS C
     Dosage: 120 MCG;QW;SC
     Route: 058
     Dates: start: 20060825, end: 20070824
  2. REBETOL [Suspect]
     Indication: HEPATITIS C
     Dosage: 1200 MG; QD; PO
     Route: 048
     Dates: start: 20060825, end: 20070824
  3. DAFALGAN [Concomitant]

REACTIONS (2)
  - ALCOHOL DETOXIFICATION [None]
  - DEPRESSION [None]
